FAERS Safety Report 12108886 (Version 1)
Quarter: 2016Q1

REPORT INFORMATION
  Report Type: Report from Study
  Country: US (occurrence: US)
  Receive Date: 20160224
  Receipt Date: 20160224
  Transmission Date: 20160526
  Serious: No
  Sender: FDA-Public Use
  Company Number: PHEH2016US004380

PATIENT
  Age: 44 Year
  Sex: Female

DRUGS (1)
  1. ZYKADIA [Suspect]
     Active Substance: CERITINIB
     Indication: NON-SMALL CELL LUNG CANCER
     Dosage: 600 MG, QD (ONCE DAILY)
     Route: 048
     Dates: start: 20151101

REACTIONS (1)
  - Nausea [Recovering/Resolving]

NARRATIVE: CASE EVENT DATE: 20151101
